FAERS Safety Report 12058484 (Version 1)
Quarter: 2016Q1

REPORT INFORMATION
  Report Type: Spontaneous
  Country: US (occurrence: None)
  Receive Date: 20160209
  Receipt Date: 20160209
  Transmission Date: 20160526
  Serious: No
  Sender: FDA-Public Use
  Company Number: None

PATIENT
  Age: 54 Year
  Sex: Female
  Weight: 140.62 kg

DRUGS (22)
  1. CINNAMON. [Concomitant]
     Active Substance: CINNAMON
  2. POLYETHYLENE GLYCOL [Concomitant]
     Active Substance: POLYETHYLENE GLYCOLS
  3. TRAMADOL HCL [Concomitant]
     Active Substance: TRAMADOL HYDROCHLORIDE
  4. METFORMIN HCL [Concomitant]
     Active Substance: METFORMIN HYDROCHLORIDE
  5. MELOXICAM. [Concomitant]
     Active Substance: MELOXICAM
  6. PREMARIN [Concomitant]
     Active Substance: ESTROGENS, CONJUGATED
  7. VOLTAREN GEL DICLOFENAC SODIUM [Concomitant]
  8. IRBESARTAN. [Concomitant]
     Active Substance: IRBESARTAN
  9. OMEGA 3 [Concomitant]
     Active Substance: OMEGA-3 FATTY ACIDS
  10. HYDROXYCHLOROQUINE 200MG [Suspect]
     Active Substance: HYDROXYCHLOROQUINE
     Indication: ARTHRITIS
     Dates: start: 201601
  11. BENADRYL ITCH STOPPING CREAM [Concomitant]
  12. LIPITOR [Concomitant]
     Active Substance: ATORVASTATIN CALCIUM
  13. CLARITIN [Concomitant]
     Active Substance: LORATADINE
  14. FISH OIL [Concomitant]
     Active Substance: FISH OIL
  15. MYSTATIN [Concomitant]
  16. NYSTATIN POWDER [Concomitant]
  17. HYOSCYAMINE. [Suspect]
     Active Substance: HYOSCYAMINE
     Indication: ABDOMINAL DISCOMFORT
     Dates: start: 20151210, end: 20151224
  18. FAMOTIDINE. [Concomitant]
     Active Substance: FAMOTIDINE
  19. LUTEIN [Concomitant]
     Active Substance: LUTEIN
  20. GABAPENTIN. [Concomitant]
     Active Substance: GABAPENTIN
  21. TRIAMCINOLONE [Concomitant]
     Active Substance: TRIAMCINOLONE
  22. CLOTRIMAZOLE CREAM [Concomitant]
     Active Substance: CLOTRIMAZOLE

REACTIONS (5)
  - Rash [None]
  - Abasia [None]
  - Stomatitis [None]
  - Ageusia [None]
  - Contusion [None]

NARRATIVE: CASE EVENT DATE: 20160106
